FAERS Safety Report 6111227-5 (Version None)
Quarter: 2009Q1

REPORT INFORMATION
  Report Type: 
  Country: None (occurrence: None)
  Receive Date: 20090311
  Receipt Date: 20090303
  Transmission Date: 20090719
  Serious: Yes (Other)
  Sender: FDA-Public Use
  Company Number: US-ABBOTT-09P-163-0498640-00

PATIENT
  Sex: Female
  Weight: 128.94 kg

DRUGS (2)
  1. HUMIRA [Suspect]
     Indication: RHEUMATOID ARTHRITIS
     Dates: start: 20090115
  2. METHOTREXATE [Suspect]
     Indication: DRUG USE FOR UNKNOWN INDICATION
     Dosage: EVERY WEDNESDAY

REACTIONS (7)
  - CYST [None]
  - INJECTION SITE HAEMORRHAGE [None]
  - NASAL CONGESTION [None]
  - NASOPHARYNGITIS [None]
  - PYREXIA [None]
  - WEIGHT DECREASED [None]
  - WRONG TECHNIQUE IN DRUG USAGE PROCESS [None]
